FAERS Safety Report 23164637 (Version 1)
Quarter: 2023Q4

REPORT INFORMATION
  Report Type: Spontaneous
  Country: KR (occurrence: KR)
  Receive Date: 20231109
  Receipt Date: 20231109
  Transmission Date: 20240110
  Serious: Yes (Death)
  Sender: FDA-Public Use
  Company Number: KR-MYLANLABS-2023M1119196

PATIENT
  Age: 61 Year
  Sex: Female

DRUGS (1)
  1. LIPITOR [Suspect]
     Active Substance: ATORVASTATIN CALCIUM
     Indication: Type IIa hyperlipidaemia
     Dosage: 80 MILLIGRAM, QD
     Route: 065
     Dates: start: 20200104, end: 20200125

REACTIONS (1)
  - Hepatic enzyme increased [Fatal]

NARRATIVE: CASE EVENT DATE: 20200125
